FAERS Safety Report 5649241-6 (Version None)
Quarter: 2008Q1

REPORT INFORMATION
  Report Type: 
  Country: None (occurrence: None)
  Receive Date: 20080304
  Receipt Date: 20071114
  Transmission Date: 20080703
  Serious: No
  Sender: FDA-Public Use
  Company Number: US-BAYER-200715360NA

PATIENT
  Age: 42 Year
  Sex: Female
  Weight: 91 kg

DRUGS (4)
  1. ULTRAVIST PHARMACY BULK PACKAGE 370 [Suspect]
     Indication: COMPUTERISED TOMOGRAM
     Dosage: TOTAL DAILY DOSE: 120 ML
     Route: 042
     Dates: start: 20071114, end: 20071114
  2. SYNTHROID [Concomitant]
  3. LEXAPRO [Concomitant]
  4. PREMARIN [Concomitant]

REACTIONS (2)
  - PRURITUS [None]
  - URTICARIA [None]
